FAERS Safety Report 8958329 (Version 1)
Quarter: 2012Q4

REPORT INFORMATION
  Report Type: 
  Country: US (occurrence: US)
  Receive Date: 20121210
  Receipt Date: 20121210
  Transmission Date: 20130627
  Serious: Yes (Hospitalization, Other)
  Sender: FDA-Public Use
  Company Number: US-GLAXOSMITHKLINE-A1003740A

PATIENT
  Sex: Female

DRUGS (1)
  1. BENLYSTA [Suspect]
     Indication: SYSTEMIC LUPUS ERYTHEMATOSUS
     Dosage: 920MG Unknown
     Route: 042

REACTIONS (2)
  - Skin necrosis [Not Recovered/Not Resolved]
  - Contusion [Not Recovered/Not Resolved]
